FAERS Safety Report 6827590-3 (Version None)
Quarter: 2010Q3

REPORT INFORMATION
  Report Type: 
  Country: None (occurrence: None)
  Receive Date: 20100709
  Receipt Date: 20070119
  Transmission Date: 20110219
  Serious: No
  Sender: FDA-Public Use
  Company Number: US-PFIZER INC-2007006272

PATIENT
  Sex: Male
  Weight: 99.79 kg

DRUGS (6)
  1. CHANTIX [Suspect]
     Indication: SMOKING CESSATION THERAPY
     Dates: start: 20061207
  2. HYDROCHLOROTHIAZIDE [Concomitant]
  3. PREVACID [Concomitant]
  4. MELOXICAM [Concomitant]
  5. SIMVASTATIN [Concomitant]
  6. ACETYLSALICYLIC ACID [Concomitant]

REACTIONS (3)
  - GINGIVAL BLEEDING [None]
  - GINGIVAL PAIN [None]
  - SLEEP DISORDER [None]
